FAERS Safety Report 9944163 (Version 1)
Quarter: 2014Q1

REPORT INFORMATION
  Report Type: Report from Study
  Country: US (occurrence: US)
  Receive Date: 20140303
  Receipt Date: 20140303
  Transmission Date: 20141002
  Serious: No
  Sender: FDA-Public Use
  Company Number: US-ABBVIE-13P-163-1048688-00

PATIENT
  Age: 34 Year
  Sex: Male

DRUGS (5)
  1. HUMIRA [Suspect]
     Indication: CROHN^S DISEASE
     Dates: start: 20121220
  2. ASACOL [Concomitant]
     Indication: CROHN^S DISEASE
     Dosage: PILLS
  3. EFFEXOR [Concomitant]
     Indication: AFFECTIVE DISORDER
  4. EFFEXOR [Concomitant]
     Indication: ANXIETY
  5. ELAVIL [Concomitant]
     Indication: MIGRAINE

REACTIONS (2)
  - Fatigue [Recovering/Resolving]
  - Injection site bruising [Recovering/Resolving]
